FAERS Safety Report 19454100 (Version 1)
Quarter: 2021Q2

REPORT INFORMATION
  Report Type: Spontaneous
  Country: US (occurrence: US)
  Receive Date: 20210623
  Receipt Date: 20210623
  Transmission Date: 20210717
  Serious: No
  Sender: FDA-Public Use
  Company Number: US-PFIZER INC-2021610048

PATIENT
  Age: 12 Year
  Sex: Male
  Weight: 33.57 kg

DRUGS (2)
  1. GENOTROPIN [Suspect]
     Active Substance: SOMATROPIN
     Indication: GROWTH HORMONE DEFICIENCY
     Dosage: 1.4 MG
  2. CONCERTA [Concomitant]
     Active Substance: METHYLPHENIDATE HYDROCHLORIDE
     Dosage: UNK

REACTIONS (4)
  - Wrong technique in device usage process [Unknown]
  - Device breakage [Unknown]
  - Device leakage [Unknown]
  - Product dose omission issue [Unknown]
